FAERS Safety Report 11005368 (Version 1)
Quarter: 2015Q2

REPORT INFORMATION
  Report Type: Report from Study
  Country: US (occurrence: US)
  Receive Date: 20150409
  Receipt Date: 20150409
  Transmission Date: 20150821
  Serious: Yes (Other)
  Sender: FDA-Public Use
  Company Number: PHEH2015US006641

PATIENT
  Sex: Male
  Weight: 82.1 kg

DRUGS (1)
  1. AFINITOR [Suspect]
     Active Substance: EVEROLIMUS
     Indication: PANCREATIC CARCINOMA
     Dosage: 10 MG, QD
     Route: 048
     Dates: start: 20130805

REACTIONS (8)
  - Nephrosclerosis [Unknown]
  - Rotator cuff syndrome [Unknown]
  - Pancreatic neoplasm [Unknown]
  - Osteoarthritis [Unknown]
  - Arthralgia [Unknown]
  - Bronchitis [Unknown]
  - Rash [Recovered/Resolved]
  - Benign prostatic hyperplasia [Unknown]
